FAERS Safety Report 9770891 (Version 1)
Quarter: 2013Q4

REPORT INFORMATION
  Report Type: Spontaneous
  Country: US (occurrence: US)
  Receive Date: 20131218
  Receipt Date: 20131218
  Transmission Date: 20140711
  Serious: No
  Sender: FDA-Public Use
  Company Number: US-BIOGENIDEC-2013BI120063

PATIENT
  Sex: Female

DRUGS (5)
  1. TECFIDERA [Suspect]
     Indication: MULTIPLE SCLEROSIS
     Route: 048
  2. TECFIDERA [Suspect]
     Indication: MULTIPLE SCLEROSIS
     Route: 048
  3. TOPROL XL [Concomitant]
  4. ZESTERIL [Concomitant]
  5. PROZAC [Concomitant]

REACTIONS (5)
  - Throat irritation [Unknown]
  - Cough [Unknown]
  - Flushing [Unknown]
  - Pruritus [Unknown]
  - Nausea [Unknown]
